FAERS Safety Report 8379012-1 (Version None)
Quarter: 2012Q2

REPORT INFORMATION
  Report Type: 
  Country: None (occurrence: None)
  Receive Date: 20120522
  Receipt Date: 20120522
  Transmission Date: 20120825
  Serious: Yes (Hospitalization)
  Sender: FDA-Public Use
  Company Number: None

PATIENT
  Sex: Female

DRUGS (2)
  1. BACLOFEN [Suspect]
     Indication: MYALGIA
     Dosage: ONE TABLET 3 X DAILY ORAL
     Route: 048
     Dates: start: 20120408
  2. BACLOFEN [Suspect]
     Indication: DIABETES MELLITUS
     Dosage: ONE TABLET 3 X DAILY ORAL
     Route: 048
     Dates: start: 20120408

REACTIONS (2)
  - ANXIETY [None]
  - PARANOIA [None]
